FAERS Safety Report 17018343 (Version 2)
Quarter: 2019Q4

REPORT INFORMATION
  Report Type: Spontaneous
  Country: BR (occurrence: BR)
  Receive Date: 20191111
  Receipt Date: 20191115
  Transmission Date: 20200122
  Serious: Yes (Death, Disabling, Other)
  Sender: FDA-Public Use
  Company Number: NVSC2019BR030473

PATIENT
  Age: 92 Year
  Sex: Female

DRUGS (2)
  1. DIGOXIN. [Concomitant]
     Active Substance: DIGOXIN
     Indication: BLOOD PRESSURE ABNORMAL
     Dosage: 1 DF, QD
     Route: 065
  2. HIGROTON [Suspect]
     Active Substance: CHLORTHALIDONE
     Indication: HYPERTENSION
     Dosage: 1 DF, QD (START DATE: 45 YERAS AGO)
     Route: 048

REACTIONS (4)
  - Blindness [Unknown]
  - Wrong technique in product usage process [Unknown]
  - Fall [Unknown]
  - Pneumonia [Fatal]
